FAERS Safety Report 6981193-9 (Version None)
Quarter: 2010Q3

REPORT INFORMATION
  Report Type: 
  Country: None (occurrence: None)
  Receive Date: 20100914
  Receipt Date: 20100901
  Transmission Date: 20110219
  Serious: No
  Sender: FDA-Public Use
  Company Number: US-PFIZER INC-2010111210

PATIENT
  Sex: Male

DRUGS (1)
  1. ZYVOX [Suspect]
     Indication: VARICOSE ULCERATION
     Dosage: 600 MG, 2X/DAY
     Route: 048
     Dates: start: 20100816, end: 20100826

REACTIONS (1)
  - DECREASED APPETITE [None]
